FAERS Safety Report 5913553-9 (Version None)
Quarter: 2008Q4

REPORT INFORMATION
  Report Type: 
  Country: None (occurrence: None)
  Receive Date: 20081006
  Receipt Date: 20080924
  Transmission Date: 20090506
  Serious: Yes (Death, Hospitalization, Other)
  Sender: FDA-Public Use
  Company Number: 2008-01165

PATIENT
  Age: 86 Year
  Sex: Female
  Weight: 55.8 kg

DRUGS (2)
  1. VELCADE [Suspect]
     Indication: BRONCHIOLOALVEOLAR CARCINOMA
     Dosage: 1.6 MG/M2, IV BOLUS
     Route: 040
     Dates: start: 20071002, end: 20080304
  2. VERAPAMIL [Concomitant]

REACTIONS (7)
  - BILE DUCT OBSTRUCTION [None]
  - DIARRHOEA [None]
  - DISEASE PROGRESSION [None]
  - DRUG INEFFECTIVE [None]
  - HEPATIC FAILURE [None]
  - MALIGNANT NEOPLASM PROGRESSION [None]
  - METASTASES TO LIVER [None]
